FAERS Safety Report 7153939-0 (Version None)
Quarter: 2010Q4

REPORT INFORMATION
  Report Type: 
  Country: None (occurrence: None)
  Receive Date: 20101213
  Receipt Date: 20101209
  Transmission Date: 20110411
  Serious: Yes (Hospitalization)
  Sender: FDA-Public Use
  Company Number: DE-B.I. PHARMACEUTICALS,INC./RIDGEFIELD-2010-DE-06038DE

PATIENT
  Age: 67 Year
  Sex: Female
  Weight: 98 kg

DRUGS (2)
  1. PRADAXA [Suspect]
     Indication: ATRIAL FIBRILLATION
     Dosage: 220 MG
     Route: 048
     Dates: start: 20101002
  2. PRADAXA [Suspect]
     Dosage: 110 MG
     Route: 048

REACTIONS (8)
  - ALBUMINURIA [None]
  - BLADDER PAIN [None]
  - BLOOD URINE PRESENT [None]
  - DIZZINESS [None]
  - DYSURIA [None]
  - HAEMATURIA [None]
  - NAUSEA [None]
  - RENAL PAIN [None]
